FAERS Safety Report 6607869-0 (Version None)
Quarter: 2010Q1

REPORT INFORMATION
  Report Type: 
  Country: None (occurrence: None)
  Receive Date: 20100301
  Receipt Date: 20100222
  Transmission Date: 20100710
  Serious: Yes (Death)
  Sender: FDA-Public Use
  Company Number: CHPA2010US03709

PATIENT
  Age: 70 Year
  Sex: Female

DRUGS (3)
  1. DIPHENHYDRAMINE (NCH) [Suspect]
     Dosage: UNK, UNK
     Route: 048
  2. MORPHINE [Suspect]
     Dosage: UNK, UNK
     Route: 048
  3. TRAMADOL HCL [Suspect]
     Dosage: UNK, UNK
     Route: 048

REACTIONS (1)
  - INTENTIONAL DRUG MISUSE [None]
